FAERS Safety Report 8155140-0 (Version None)
Quarter: 2012Q1

REPORT INFORMATION
  Report Type: 
  Country: None (occurrence: None)
  Receive Date: 20120221
  Receipt Date: 20120216
  Transmission Date: 20120608
  Serious: Yes (Life-Threatening, Hospitalization)
  Sender: FDA-Public Use
  Company Number: DE-ASTRAZENECA-2012SE05067

PATIENT
  Age: 27354 Day
  Sex: Male

DRUGS (10)
  1. GLIMEPERID [Concomitant]
     Route: 048
  2. BRILIQUE [Suspect]
     Route: 048
     Dates: start: 20120101, end: 20120114
  3. SIMVASTATIN [Concomitant]
     Route: 048
  4. ASPIRIN [Concomitant]
     Route: 048
     Dates: start: 20120119
  5. BISOPROLOL FUMARATE [Concomitant]
     Route: 048
  6. MOVIPREP [Concomitant]
     Dosage: AS REQUIRED
     Route: 048
  7. BIFITERAL [Concomitant]
     Dosage: AS REQUIRED
     Route: 048
  8. ASPIRIN [Concomitant]
     Route: 048
     Dates: start: 20120101
  9. PANTOPRAZOLE [Concomitant]
     Route: 048
  10. RAMIPRIL [Concomitant]
     Route: 048

REACTIONS (2)
  - LARGE INTESTINAL HAEMORRHAGE [None]
  - SHOCK HAEMORRHAGIC [None]
